FAERS Safety Report 8393403-4 (Version None)
Quarter: 2012Q2

REPORT INFORMATION
  Report Type: 
  Country: None (occurrence: None)
  Receive Date: 20120529
  Receipt Date: 20120524
  Transmission Date: 20120825
  Serious: No
  Sender: FDA-Public Use
  Company Number: US-PFIZER INC-2012126094

PATIENT

DRUGS (2)
  1. EFFEXOR XR [Suspect]
     Dosage: 112.5 MG, UNK
  2. EFFEXOR XR [Suspect]
     Dosage: 150 MG, UNK

REACTIONS (2)
  - VOMITING [None]
  - NAUSEA [None]
